FAERS Safety Report 17120631 (Version 2)
Quarter: 2019Q4

REPORT INFORMATION
  Report Type: Report from Study
  Country: BE (occurrence: BE)
  Receive Date: 20191206
  Receipt Date: 20191219
  Transmission Date: 20200122
  Serious: Yes (Other)
  Sender: FDA-Public Use
  Company Number: BE-TEVA-2019-BE-1146800

PATIENT
  Age: 79 Year
  Sex: Male
  Weight: 75 kg

DRUGS (14)
  1. XARELTO [Concomitant]
     Active Substance: RIVAROXABAN
     Dosage: 20 MILLIGRAM, QD
     Route: 065
     Dates: start: 20161227
  2. IRINOTECAN [Suspect]
     Active Substance: IRINOTECAN
     Dosage: ON 04/FEB/2019, RECEIVED MOST RECENT DOSE OF IRINOTECAN259 (UNIT NOT REPORTED).
     Route: 042
     Dates: start: 20181022
  3. BEVACIZUMAB. [Suspect]
     Active Substance: BEVACIZUMAB
     Indication: COLORECTAL CANCER METASTATIC
     Dosage: MOST RECENT DOSE AND DATE OF BEVACIZUMAB UPDATED TO 375 MG AND 19/NOV/2018, 375 MG
     Route: 042
     Dates: start: 20181022
  4. FLUOROURACIL. [Suspect]
     Active Substance: FLUOROURACIL
     Dosage: 1 DOSAGE FORM, BIWEEKLY
     Route: 042
     Dates: start: 20181203
  5. AMLOR [Concomitant]
     Active Substance: AMLODIPINE BESYLATE
     Dosage: 5 MILLIGRAM
     Route: 065
  6. BROMAZEPAM [Concomitant]
     Active Substance: BROMAZEPAM
     Dosage: UNK
     Route: 065
  7. ZYLORIC [Concomitant]
     Active Substance: ALLOPURINOL
     Dosage: 300 MILLIGRAM, QD
     Route: 065
  8. OXALIPLATIN. [Suspect]
     Active Substance: OXALIPLATIN
     Indication: COLORECTAL CANCER METASTATIC
     Dosage: UNK
     Route: 042
  9. FOLINIC ACID [Suspect]
     Active Substance: LEUCOVORIN
     Indication: COLORECTAL CANCER METASTATIC
     Dosage: 1 DOSAGE FORM, BIWEEKLY
     Route: 042
     Dates: start: 20181022
  10. FLUOROURACIL. [Suspect]
     Active Substance: FLUOROURACIL
     Indication: COLORECTAL CANCER METASTATIC
     Dosage: ON 04/FEB/2019, RECEIVED MOST RECENT DOSE OF FLUOROURACIL 3872.8 (UNIT NOT REPORTED), 1 DF
     Route: 042
     Dates: start: 20191022
  11. IRINOTECAN [Suspect]
     Active Substance: IRINOTECAN
     Indication: COLORECTAL CANCER METASTATIC
     Dosage: 1 DOSAGE FORM, BIWEEKLY
     Route: 042
     Dates: start: 20181203
  12. BEVACIZUMAB. [Suspect]
     Active Substance: BEVACIZUMAB
     Dosage: 1 DOSAGE FORM, BIWEEKLY
     Route: 042
     Dates: start: 20181203
  13. PARACETAMOL [Concomitant]
     Active Substance: ACETAMINOPHEN
     Dosage: UNK
  14. TRADONAL [Concomitant]
     Active Substance: TRAMADOL HYDROCHLORIDE
     Dosage: UNK
     Route: 065

REACTIONS (18)
  - Dysphonia [Not Recovered/Not Resolved]
  - Syncope [Recovered/Resolved]
  - Malaise [Not Recovered/Not Resolved]
  - Epistaxis [Not Recovered/Not Resolved]
  - Proteinuria [Not Recovered/Not Resolved]
  - Fatigue [Not Recovered/Not Resolved]
  - Neuropathy peripheral [Not Recovered/Not Resolved]
  - Haemorrhage [Not Recovered/Not Resolved]
  - Scab [Not Recovered/Not Resolved]
  - Respiratory tract infection [Recovered/Resolved]
  - Epistaxis [Recovered/Resolved]
  - Dysphonia [Not Recovered/Not Resolved]
  - Epistaxis [Recovered/Resolved]
  - Constipation [Not Recovered/Not Resolved]
  - Anal haemorrhage [Recovered/Resolved]
  - Diarrhoea [Recovered/Resolved]
  - Nasopharyngitis [Not Recovered/Not Resolved]
  - Stomatitis [Recovered/Resolved]

NARRATIVE: CASE EVENT DATE: 20181109
